FAERS Safety Report 7272623-6 (Version None)
Quarter: 2011Q1

REPORT INFORMATION
  Report Type: 
  Country: None (occurrence: None)
  Receive Date: 20110127
  Receipt Date: 20110117
  Transmission Date: 20110831
  Serious: Yes (Death, Other)
  Sender: FDA-Public Use
  Company Number: GB-ACCORD-005313

PATIENT
  Age: 78 Year
  Sex: Female
  Weight: 48 kg

DRUGS (4)
  1. ETOPOSIDE [Suspect]
     Indication: TERATOMA
     Dosage: 80.000MG/M2
  2. PEPLOMYCIN(PEPLOMYCIN) [Suspect]
     Indication: TERATOMA
     Dosage: 3.50-MG/M2
  3. CARBOPLATIN [Suspect]
     Indication: TERATOMA
  4. PACLITAXEL [Suspect]
     Indication: TERATOMA
     Dosage: 135.00-MG/M2

REACTIONS (7)
  - DISORIENTATION [None]
  - METASTASES TO PERITONEUM [None]
  - ILEUS [None]
  - LYMPHADENOPATHY [None]
  - OVARIAN CANCER RECURRENT [None]
  - OFF LABEL USE [None]
  - METASTASES TO OVARY [None]
